FAERS Safety Report 25376482 (Version 1)
Quarter: 2025Q2

REPORT INFORMATION
  Report Type: Spontaneous
  Country: CZ (occurrence: CZ)
  Receive Date: 20250529
  Receipt Date: 20250529
  Transmission Date: 20250717
  Serious: Yes (Death, Other)
  Sender: BRISTOL-MYERS SQUIBB COMPANY
  Company Number: CZ-BRISTOL-MYERS SQUIBB COMPANY-2025-077400

PATIENT
  Age: 61 Year
  Sex: Male

DRUGS (5)
  1. OPDIVO [Suspect]
     Active Substance: NIVOLUMAB
     Indication: Adenocarcinoma
     Dates: start: 202204
  2. OPDIVO [Suspect]
     Active Substance: NIVOLUMAB
     Dates: start: 202207
  3. OPDIVO [Suspect]
     Active Substance: NIVOLUMAB
     Dates: start: 202208
  4. OPDIVO [Suspect]
     Active Substance: NIVOLUMAB
     Dates: start: 20220927, end: 202404
  5. YERVOY [Suspect]
     Active Substance: IPILIMUMAB
     Indication: Adenocarcinoma
     Dates: start: 202204

REACTIONS (1)
  - Death [Fatal]

NARRATIVE: CASE EVENT DATE: 20240901
